FAERS Safety Report 6720627-1 (Version None)
Quarter: 2010Q2

REPORT INFORMATION
  Report Type: 
  Country: None (occurrence: None)
  Receive Date: 20100510
  Receipt Date: 20100427
  Transmission Date: 20101027
  Serious: Yes (Other)
  Sender: FDA-Public Use
  Company Number: US-1181760

PATIENT
  Sex: Female

DRUGS (3)
  1. NEVANAC [Suspect]
     Indication: CATARACT OPERATION
     Dosage: 1 GTT QID OS OPHTHALMIC
     Route: 047
     Dates: start: 20100414, end: 20100423
  2. VIGAMOX [Suspect]
     Indication: CATARACT OPERATION
     Dosage: OPHTHALMIC
     Route: 047
  3. OMNIPRED [Suspect]
     Indication: CATARACT OPERATION
     Dosage: OPHTHALMIC
     Route: 047

REACTIONS (8)
  - EAR DISCOMFORT [None]
  - HYPERSENSITIVITY [None]
  - HYPOAESTHESIA ORAL [None]
  - INSOMNIA [None]
  - LOCAL SWELLING [None]
  - PHARYNGEAL OEDEMA [None]
  - SWELLING FACE [None]
  - SWOLLEN TONGUE [None]
